FAERS Safety Report 23682698 (Version 5)
Quarter: 2025Q1

REPORT INFORMATION
  Report Type: Spontaneous
  Country: US (occurrence: US)
  Receive Date: 20240328
  Receipt Date: 20250102
  Transmission Date: 20250408
  Serious: No
  Sender: DR REDDYS
  Company Number: US-drreddys-SPO/USA/23/0175128

PATIENT
  Age: 5 Year
  Sex: Male
  Weight: 23.24 kg

DRUGS (4)
  1. SAPROPTERIN DIHYDROCHLORIDE [Suspect]
     Active Substance: SAPROPTERIN DIHYDROCHLORIDE
     Indication: Phenylketonuria
     Route: 048
  2. SAPROPTERIN DIHYDROCHLORIDE [Suspect]
     Active Substance: SAPROPTERIN DIHYDROCHLORIDE
     Route: 048
  3. JAVYGTOR [Suspect]
     Active Substance: SAPROPTERIN DIHYDROCHLORIDE
     Indication: Phenylketonuria
     Route: 048
  4. Kuvan 100 mg powder pack [Concomitant]
     Indication: Product used for unknown indication
     Route: 065

REACTIONS (8)
  - Pharyngitis streptococcal [Unknown]
  - Influenza [Unknown]
  - Ear infection [Unknown]
  - Nasopharyngitis [Unknown]
  - Product colour issue [Unknown]
  - Product use issue [Unknown]
  - Product dose omission issue [Unknown]
  - Drug ineffective [Unknown]
